FAERS Safety Report 4744186-8 (Version None)
Quarter: 2005Q3

REPORT INFORMATION
  Report Type: 
  Country: None (occurrence: None)
  Receive Date: 20050810
  Receipt Date: 20050810
  Transmission Date: 20060218
  Serious: Yes (Other)
  Sender: FDA-Public Use
  Company Number: None

PATIENT
  Age: 43 Year
  Sex: Female

DRUGS (3)
  1. PAXIL [Suspect]
     Indication: ANXIETY
     Dosage: 30 MG AT THAT TIME
  2. PAXIL [Suspect]
     Indication: DEPRESSION
     Dosage: 30 MG AT THAT TIME
  3. OXYCONTIN [Concomitant]

REACTIONS (3)
  - ANXIETY [None]
  - CHOKING SENSATION [None]
  - THERAPEUTIC RESPONSE UNEXPECTED WITH DRUG SUBSTITUTION [None]
